FAERS Safety Report 10174451 (Version 2)
Quarter: 2014Q3

REPORT INFORMATION
  Report Type: Spontaneous
  Country: US (occurrence: US)
  Receive Date: 20140515
  Receipt Date: 20140715
  Transmission Date: 20150326
  Serious: Yes (Hospitalization)
  Sender: FDA-Public Use
  Company Number: US-GLAXOSMITHKLINE-A1072467A

PATIENT
  Age: 29 Year
  Sex: Female
  Weight: 87.3 kg

DRUGS (1)
  1. BENLYSTA [Suspect]
     Active Substance: BELIMUMAB
     Indication: SYSTEMIC LUPUS ERYTHEMATOSUS
     Dosage: 10MGK UNKNOWN
     Route: 042
     Dates: end: 20140217

REACTIONS (4)
  - Malaise [Unknown]
  - Bedridden [Unknown]
  - Schizophrenia, paranoid type [Unknown]
  - Performance status decreased [Unknown]

NARRATIVE: CASE EVENT DATE: 201402
